FAERS Safety Report 16114603 (Version 1)
Quarter: 2019Q1

REPORT INFORMATION
  Report Type: Spontaneous
  Country: FR (occurrence: FR)
  Receive Date: 20190325
  Receipt Date: 20190325
  Transmission Date: 20190418
  Serious: Yes (Hospitalization)
  Sender: FDA-Public Use
  Company Number: FR-JNJFOC-20190329423

PATIENT
  Age: 45 Year
  Sex: Female

DRUGS (10)
  1. VITAMINE B1 [Concomitant]
     Active Substance: THIAMINE HYDROCHLORIDE
     Route: 065
  2. ANDROCUR [Concomitant]
     Active Substance: CYPROTERONE ACETATE
     Route: 065
  3. REMICADE [Suspect]
     Active Substance: INFLIXIMAB
     Indication: ANKYLOSING SPONDYLITIS
     Route: 042
     Dates: start: 20150917
  4. PRINCI B [Concomitant]
     Route: 065
  5. COLCHICINE. [Concomitant]
     Active Substance: COLCHICINE
     Route: 065
  6. VITAMIN B6 [Concomitant]
     Active Substance: PYRIDOXINE HYDROCHLORIDE
     Route: 065
  7. CORTANCYL [Concomitant]
     Active Substance: PREDNISONE
     Route: 065
  8. SPASFON [Concomitant]
     Route: 065
  9. PROVAMES [Concomitant]
     Active Substance: ESTRADIOL
     Route: 065
  10. INEXIUM [Concomitant]
     Active Substance: ESOMEPRAZOLE
     Route: 065

REACTIONS (3)
  - Hallucination [Recovering/Resolving]
  - Vertigo [Recovering/Resolving]
  - Hypotension [Recovering/Resolving]

NARRATIVE: CASE EVENT DATE: 20181031
